FAERS Safety Report 10035855 (Version 3)
Quarter: 2014Q2

REPORT INFORMATION
  Report Type: Spontaneous
  Country: BR (occurrence: BR)
  Receive Date: 20140325
  Receipt Date: 20140505
  Transmission Date: 20141212
  Serious: Yes (Other)
  Sender: FDA-Public Use
  Company Number: BR-ELI_LILLY_AND_COMPANY-BR201403006625

PATIENT
  Sex: Female
  Weight: 52 kg

DRUGS (11)
  1. HUMULIN N [Suspect]
     Indication: BLOOD GLUCOSE ABNORMAL
     Dosage: UNK, UNKNOWN
     Route: 065
  2. HUMALOG [Suspect]
     Indication: BLOOD GLUCOSE ABNORMAL
     Dosage: 1 IU, OTHER
     Route: 058
     Dates: start: 1999
  3. MACRODANTINA [Concomitant]
     Indication: NEUROGENIC BLADDER
     Dosage: UNK, UNKNOWN
     Route: 065
  4. TEGRETOL CR [Concomitant]
     Indication: NEUROPATHY PERIPHERAL
     Dosage: UNK, UNKNOWN
     Route: 065
  5. COMPLEX B                          /00653501/ [Concomitant]
     Indication: LIMB INJURY
     Dosage: UNK, UNKNOWN
     Route: 065
  6. VITAMIN C                          /00008001/ [Concomitant]
     Indication: IMMUNODEFICIENCY
     Dosage: UNK, UNKNOWN
     Route: 065
  7. VITAMIN C                          /00008001/ [Concomitant]
     Indication: INFECTION PROPHYLAXIS
  8. OSCAL D                            /00944201/ [Concomitant]
     Indication: PRODUCT USED FOR UNKNOWN INDICATION
     Dosage: UNK, UNKNOWN
     Route: 065
  9. PROPRANOLOL [Concomitant]
     Indication: ARRHYTHMIA
     Dosage: 10 MG, UNKNOWN
     Route: 065
  10. SERTRALINE [Concomitant]
     Indication: ANXIETY
     Dosage: 90 MG, UNKNOWN
     Route: 065
  11. LEVEMIR [Concomitant]
     Indication: PRODUCT USED FOR UNKNOWN INDICATION
     Dosage: UNK, UNKNOWN
     Route: 065

REACTIONS (5)
  - Hypoglycaemic unconsciousness [Recovered/Resolved]
  - Neurogenic bladder [Not Recovered/Not Resolved]
  - Gait disturbance [Not Recovered/Not Resolved]
  - Orthostatic hypotension [Not Recovered/Not Resolved]
  - Drug ineffective [Recovered/Resolved]
